FAERS Safety Report 8333555-5 (Version None)
Quarter: 2012Q2

REPORT INFORMATION
  Report Type: 
  Country: None (occurrence: None)
  Receive Date: 20120503
  Receipt Date: 20101109
  Transmission Date: 20120825
  Serious: No
  Sender: FDA-Public Use
  Company Number: US-TEVA-2010005936

PATIENT
  Sex: Female

DRUGS (2)
  1. NUVIGIL [Suspect]
     Indication: BIPOLAR I DISORDER
     Dosage: 300 MILLIGRAM;
     Route: 048
     Dates: start: 20100101
  2. NUVIGIL [Suspect]
     Dosage: 450 MILLIGRAM;
     Route: 048
     Dates: start: 20101105

REACTIONS (1)
  - INTENTIONAL DRUG MISUSE [None]
